FAERS Safety Report 4866966-0 (Version None)
Quarter: 2005Q4

REPORT INFORMATION
  Report Type: 
  Country: None (occurrence: None)
  Receive Date: 20051227
  Receipt Date: 20051005
  Transmission Date: 20060501
  Serious: Yes (Hospitalization)
  Sender: FDA-Public Use
  Company Number: US-MERCK-0510USA04697

PATIENT
  Sex: Female
  Weight: 77 kg

DRUGS (16)
  1. VIOXX [Suspect]
     Indication: ARTHRITIS
     Route: 048
     Dates: start: 20010101, end: 20040101
  2. PLAVIX [Concomitant]
     Route: 065
  3. LIPITOR [Concomitant]
     Route: 065
  4. COSOPT [Concomitant]
     Route: 065
  5. SYNTHROID [Concomitant]
     Route: 065
  6. FLUOXETINE [Concomitant]
     Route: 065
  7. ATENOLOL [Concomitant]
     Route: 065
  8. HYDROCHLOROTHIAZIDE [Concomitant]
     Route: 065
  9. ISOSORBIDE [Concomitant]
     Route: 065
  10. NITROGLYCERIN [Concomitant]
     Route: 065
  11. CLORAZEPATE DIPOTASSIUM [Concomitant]
     Route: 065
  12. NIFEDIPINE [Concomitant]
     Route: 065
  13. DENAVIR [Concomitant]
     Route: 065
  14. TIMOLOL MALEATE [Concomitant]
     Route: 065
  15. XALATAN [Concomitant]
     Route: 065
  16. CEPHALEXIN [Concomitant]
     Route: 065

REACTIONS (7)
  - ANAEMIA [None]
  - ANXIETY [None]
  - BENIGN HEPATIC NEOPLASM [None]
  - CARDIOVASCULAR DISORDER [None]
  - MYOCARDIAL INFARCTION [None]
  - SEPSIS [None]
  - VOLUME BLOOD DECREASED [None]
